FAERS Safety Report 8532640-2 (Version None)
Quarter: 2012Q3

REPORT INFORMATION
  Report Type: 
  Country: None (occurrence: None)
  Receive Date: 20120724
  Receipt Date: 20120719
  Transmission Date: 20120928
  Serious: Yes (Other)
  Sender: FDA-Public Use
  Company Number: US-AMGEN-USASP2012045057

PATIENT
  Age: 31 Year
  Sex: Female

DRUGS (2)
  1. TREXALL [Concomitant]
     Dosage: UNK
  2. ENBREL [Suspect]
     Indication: RHEUMATOID ARTHRITIS
     Dosage: 50 MG, QWK
     Dates: start: 20120510, end: 20120701

REACTIONS (7)
  - SUICIDAL IDEATION [None]
  - ABDOMINAL PAIN [None]
  - ANXIETY [None]
  - HYPERTENSION [None]
  - HEADACHE [None]
  - VOMITING [None]
  - DRUG EFFECT DECREASED [None]
